FAERS Safety Report 24325252 (Version 1)
Quarter: 2024Q3

REPORT INFORMATION
  Report Type: Spontaneous
  Country: TR (occurrence: TR)
  Receive Date: 20240916
  Receipt Date: 20240916
  Transmission Date: 20241017
  Serious: Yes (Other)
  Sender: KVK-TECH
  Company Number: TR-KVK-TECH, INC-20240900131

PATIENT

DRUGS (1)
  1. METHYLPHENIDATE HYDROCHLORIDE [Suspect]
     Active Substance: METHYLPHENIDATE HYDROCHLORIDE
     Indication: Attention deficit hyperactivity disorder
     Dosage: 600 MILLIGRAM (MPH-IR 30 TABLETS OF 20 MG/DAY )
     Route: 065

REACTIONS (1)
  - Dystonia [Unknown]
